FAERS Safety Report 6144757-0 (Version None)
Quarter: 2009Q2

REPORT INFORMATION
  Report Type: 
  Country: None (occurrence: None)
  Receive Date: 20090402
  Receipt Date: 20081222
  Transmission Date: 20091009
  Serious: No
  Sender: FDA-Public Use
  Company Number: 1000004643

PATIENT
  Age: 43 Year
  Sex: Female
  Weight: 92.53 kg

DRUGS (5)
  1. BYSTOLIC [Suspect]
     Indication: HYPERTENSION
     Dosage: 10 MG (10 MG,  1 IN 1 D),ORAL
     Route: 048
  2. ACTPHEX (RABEPRAZOLE SODIUM) (RABEPRAZOLE SODIUM) [Concomitant]
  3. VITAMIN E [Concomitant]
  4. NASACORT (TRIAMCINOLONE ACETONIDE)(TRIAMCINOLONE ACETONIDE) [Concomitant]
  5. XYZAL (LEVOCETIRIZINE DIHYDROCHLORIDE)(LEVOCETIRIZINE DIHYDROCHLORIDE) [Concomitant]

REACTIONS (4)
  - HYPOAESTHESIA [None]
  - HYPOAESTHESIA FACIAL [None]
  - MUSCLE SPASMS [None]
  - PARAESTHESIA [None]
